FAERS Safety Report 24926880 (Version 1)
Quarter: 2025Q1

REPORT INFORMATION
  Report Type: Spontaneous
  Country: KR (occurrence: KR)
  Receive Date: 20250205
  Receipt Date: 20250205
  Transmission Date: 20250409
  Serious: Yes (Hospitalization, Other)
  Sender: CELLTRION
  Company Number: KR-CELLTRION INC.-2025KR003644

PATIENT

DRUGS (1)
  1. INFLIXIMAB [Suspect]
     Active Substance: INFLIXIMAB
     Indication: Crohn^s disease
     Dosage: 120 MG, ONCE PER 2 WEEKS
     Route: 058
     Dates: start: 20241125

REACTIONS (1)
  - Small intestinal resection [Not Recovered/Not Resolved]

NARRATIVE: CASE EVENT DATE: 20250131
